FAERS Safety Report 13182687 (Version 6)
Quarter: 2021Q4

REPORT INFORMATION
  Report Type: Spontaneous
  Country: US (occurrence: US)
  Receive Date: 20170203
  Receipt Date: 20211222
  Transmission Date: 20220303
  Serious: Yes (Hospitalization, Other)
  Sender: FDA-Public Use
  Company Number: US-PFIZER INC-2017045478

PATIENT
  Age: 56 Year
  Sex: Female

DRUGS (5)
  1. XELJANZ [Suspect]
     Active Substance: TOFACITINIB CITRATE
     Indication: Rheumatoid arthritis
     Dosage: 5 MG, 2X/DAY
     Route: 048
     Dates: start: 20160420
  2. XELJANZ [Suspect]
     Active Substance: TOFACITINIB CITRATE
     Dosage: 5 MG, 2X/DAY
     Route: 048
     Dates: start: 201302
  3. RASAGILINE [Concomitant]
     Active Substance: RASAGILINE
     Indication: Parkinson^s disease
     Dosage: 1 MG, 1X/DAY
     Route: 048
     Dates: start: 202105
  4. RIVASTIGMINE [Concomitant]
     Active Substance: RIVASTIGMINE
     Indication: Parkinson^s disease
     Dosage: 1 DF, DAILY (APPLIES MOSTLY BEHIND HER EAR)
     Route: 061
     Dates: start: 202105
  5. GEMTESA [Concomitant]
     Active Substance: VIBEGRON
     Dosage: 75 MG

REACTIONS (16)
  - Internal haemorrhage [Not Recovered/Not Resolved]
  - Thrombosis [Not Recovered/Not Resolved]
  - Embolism [Not Recovered/Not Resolved]
  - Spinal fracture [Not Recovered/Not Resolved]
  - Rib fracture [Not Recovered/Not Resolved]
  - Splenic injury [Not Recovered/Not Resolved]
  - Fall [Not Recovered/Not Resolved]
  - Spinal compression fracture [Not Recovered/Not Resolved]
  - Muscular weakness [Not Recovered/Not Resolved]
  - Foot fracture [Not Recovered/Not Resolved]
  - Parkinson^s disease [Unknown]
  - Bronchiolitis [Unknown]
  - Sinusitis [Unknown]
  - Limb injury [Unknown]
  - Nasopharyngitis [Unknown]
  - Herpes zoster [Unknown]

NARRATIVE: CASE EVENT DATE: 20190801
